FAERS Safety Report 6655621-2 (Version None)
Quarter: 2010Q1

REPORT INFORMATION
  Report Type: 
  Country: None (occurrence: None)
  Receive Date: 20100317
  Receipt Date: 20100118
  Transmission Date: 20100710
  Serious: No
  Sender: FDA-Public Use
  Company Number: DSA_42359_2010

PATIENT
  Sex: Male

DRUGS (1)
  1. XENAZINE [Suspect]
     Indication: HUNTINGTON'S CHOREA
     Dosage: 25 MG BID ORAL, 25 MG ONE TABLET IN THE A.M. AND A HALF OF THE 25 MG TABLET IN THE P.M. ORAL
     Route: 048
     Dates: start: 20091124

REACTIONS (3)
  - BALANCE DISORDER [None]
  - INSOMNIA [None]
  - RESTLESSNESS [None]
